FAERS Safety Report 14208374 (Version 1)
Quarter: 2017Q4

REPORT INFORMATION
  Report Type: Spontaneous
  Country: US (occurrence: US)
  Receive Date: 20171120
  Receipt Date: 20171120
  Transmission Date: 20180321
  Serious: Yes (Other)
  Sender: FDA-Public Use
  Company Number: None

PATIENT
  Age: 19 Year
  Sex: Male
  Weight: 112.5 kg

DRUGS (6)
  1. CHLORHEXIDINE GLUCONATE (CHG)/ISOPROPYL ALCOHOL (IPA) [Suspect]
     Active Substance: CHLORHEXIDINE GLUCONATE\ISOPROPYL ALCOHOL
     Indication: INFECTION PROPHYLAXIS
     Dosage: QUANTITY:1 SWAB;?
     Route: 061
     Dates: start: 20171120, end: 20171120
  2. XOLAIR [Concomitant]
     Active Substance: OMALIZUMAB
  3. COMPOUNDED BENADRYL [Concomitant]
  4. XOPENEX [Concomitant]
     Active Substance: LEVALBUTEROL HYDROCHLORIDE
  5. CROMOLYN [Concomitant]
     Active Substance: CROMOLYN
  6. EPIDREN [Concomitant]

REACTIONS (3)
  - Dermatitis allergic [None]
  - Documented hypersensitivity to administered product [None]
  - Product use complaint [None]

NARRATIVE: CASE EVENT DATE: 20171120
